FAERS Safety Report 6073827-0 (Version None)
Quarter: 2009Q1

REPORT INFORMATION
  Report Type: 
  Country: None (occurrence: None)
  Receive Date: 20090209
  Receipt Date: 20090209
  Transmission Date: 20090719
  Serious: No
  Sender: FDA-Public Use
  Company Number: None

PATIENT
  Sex: Female
  Weight: 86.1834 kg

DRUGS (9)
  1. EVISTA [Suspect]
     Indication: OSTEOPENIA
     Dosage: 1 TABLET DAILY PO
     Route: 048
     Dates: start: 20040101, end: 20090131
  2. BISOPROLOL [Concomitant]
  3. MIDODRINE [Concomitant]
  4. MICARDIS/HCTZ [Concomitant]
  5. COUMADIN [Concomitant]
  6. ASPIRIN [Concomitant]
  7. EVISTA [Concomitant]
  8. COENZYME Q10 [Concomitant]
  9. LIPITOR [Concomitant]

REACTIONS (2)
  - BLINDNESS UNILATERAL [None]
  - RETINAL ARTERY OCCLUSION [None]
